FAERS Safety Report 6736615 (Version 8)
Quarter: 2015Q3

REPORT INFORMATION
  Report Type: Report from Study
  Country: JP (occurrence: JP)
  Receive Date: 20080825
  Receipt Date: 20150706
  Transmission Date: 20151125
  Serious: Yes (Hospitalization, Other)
  Sender: FDA-Public Use
  Company Number: PHBS2007JP13639

PATIENT
  Age: 44 Year
  Sex: Male
  Weight: 61 kg

DRUGS (51)
  1. NEORAL [Suspect]
     Active Substance: CYCLOSPORINE
     Dosage: 425 MG, QD
     Route: 048
     Dates: start: 20021118, end: 20021118
  2. NEORAL [Suspect]
     Active Substance: CYCLOSPORINE
     Dosage: 250 MG, QD
     Route: 065
     Dates: start: 20021201, end: 20021204
  3. NEORAL [Suspect]
     Active Substance: CYCLOSPORINE
     Dosage: 225 MG, QD
     Route: 048
     Dates: start: 20021219, end: 20021219
  4. NEORAL [Suspect]
     Active Substance: CYCLOSPORINE
     Dosage: 250 MG, QD
     Route: 048
     Dates: start: 20021220, end: 20030804
  5. NEORAL [Suspect]
     Active Substance: CYCLOSPORINE
     Dosage: 225 MG, QD
     Route: 048
     Dates: start: 20030805, end: 20031023
  6. NEORAL [Suspect]
     Active Substance: CYCLOSPORINE
     Dosage: 150 MG, UNK
     Route: 048
     Dates: start: 20080118, end: 20080313
  7. NEORAL [Suspect]
     Active Substance: CYCLOSPORINE
     Dosage: 135 MG, UNK
     Route: 048
     Dates: start: 20100316, end: 20100923
  8. NEORAL [Suspect]
     Active Substance: CYCLOSPORINE
     Dosage: 100 MG, UNK
     Route: 048
     Dates: start: 20120630, end: 20121102
  9. CELLCEPT [Suspect]
     Active Substance: MYCOPHENOLATE MOFETIL\MYCOPHENOLATE MOFETIL HYDROCHLORIDE
     Dosage: 1 G, UNK
     Route: 048
     Dates: start: 20070720, end: 20080522
  10. EPADEL [Concomitant]
     Active Substance: ICOSAPENT
     Dosage: 2400 MG, UNK
     Route: 048
     Dates: start: 20110316
  11. CERTICAN [Suspect]
     Active Substance: EVEROLIMUS
     Indication: HEART TRANSPLANT
     Dosage: 1 MG, UNK
     Route: 048
     Dates: start: 20070319, end: 20070527
  12. CERTICAN [Suspect]
     Active Substance: EVEROLIMUS
     Dosage: 1.5 MG, UNK
     Route: 048
     Dates: start: 20070528, end: 20070608
  13. CERTICAN [Suspect]
     Active Substance: EVEROLIMUS
     Dosage: 1 MG, UNK
     Route: 048
     Dates: start: 20080624
  14. NEORAL [Suspect]
     Active Substance: CYCLOSPORINE
     Dosage: 250 MG, QD
     Route: 048
     Dates: start: 20091130, end: 20100315
  15. NEORAL [Suspect]
     Active Substance: CYCLOSPORINE
     Dosage: 150 MG, UNK
     Dates: start: 20060511
  16. NEORAL [Suspect]
     Active Substance: CYCLOSPORINE
     Indication: HEART TRANSPLANT
     Dosage: 200 MG, QD
     Route: 048
     Dates: start: 20021114, end: 20021114
  17. NEORAL [Suspect]
     Active Substance: CYCLOSPORINE
     Dosage: 220 MG, QD
     Route: 048
     Dates: start: 20021207, end: 20021218
  18. NEORAL [Suspect]
     Active Substance: CYCLOSPORINE
     Dosage: 175 MG, UNK
     Route: 048
     Dates: start: 20070609, end: 20080117
  19. CELLCEPT [Suspect]
     Active Substance: MYCOPHENOLATE MOFETIL\MYCOPHENOLATE MOFETIL HYDROCHLORIDE
     Dosage: 2 G, UNK
     Route: 048
     Dates: start: 20070609, end: 20070719
  20. CELLCEPT [Suspect]
     Active Substance: MYCOPHENOLATE MOFETIL\MYCOPHENOLATE MOFETIL HYDROCHLORIDE
     Dosage: 2 G, UNK
     Route: 048
     Dates: start: 20091120
  21. MYCOPHENOLATE MOFETIL. [Concomitant]
     Active Substance: MYCOPHENOLATE MOFETIL
     Indication: HEART TRANSPLANT
     Dosage: 500 MG, UNK
     Route: 048
     Dates: start: 20110316
  22. CERTICAN [Suspect]
     Active Substance: EVEROLIMUS
     Dosage: 1.25 MG, UNK
     Route: 048
     Dates: start: 20070609, end: 20080306
  23. CERTICAN [Suspect]
     Active Substance: EVEROLIMUS
     Dosage: 1.25 MG, UNK
     Route: 048
     Dates: start: 20080313, end: 20080623
  24. NEORAL [Suspect]
     Active Substance: CYCLOSPORINE
     Dosage: 225 MG, QD
     Route: 048
     Dates: start: 20021115, end: 20021115
  25. NEORAL [Suspect]
     Active Substance: CYCLOSPORINE
     Dosage: 250 MG, QD
     Route: 048
     Dates: start: 20021116, end: 20021116
  26. NEORAL [Suspect]
     Active Substance: CYCLOSPORINE
     Dosage: 350 MG, QD
     Route: 048
     Dates: start: 20021117, end: 20021117
  27. CELLCEPT [Suspect]
     Active Substance: MYCOPHENOLATE MOFETIL\MYCOPHENOLATE MOFETIL HYDROCHLORIDE
     Dosage: 2 G, UNK
     Route: 048
     Dates: start: 20101130
  28. EPADEL [Concomitant]
     Active Substance: ICOSAPENT
     Indication: HYPERLIPIDAEMIA
     Dosage: 1800 MG, UNK
     Route: 048
     Dates: start: 20060123
  29. NEORAL [Suspect]
     Active Substance: CYCLOSPORINE
     Dosage: 300 MG, QD
     Route: 048
     Dates: start: 20021125, end: 20021130
  30. NEORAL [Suspect]
     Active Substance: CYCLOSPORINE
     Dosage: 210 MG, QD
     Route: 048
     Dates: start: 20021206, end: 20021206
  31. NEORAL [Suspect]
     Active Substance: CYCLOSPORINE
     Dosage: 150 MG, UNK
     Route: 065
     Dates: start: 20060511, end: 20070608
  32. NEORAL [Suspect]
     Active Substance: CYCLOSPORINE
     Dosage: 150 MG, QD
     Route: 048
     Dates: start: 20091029, end: 20091129
  33. NEORAL [Suspect]
     Active Substance: CYCLOSPORINE
     Dosage: 160 MG, UNK
     Route: 048
     Dates: start: 20100924, end: 20110120
  34. NEORAL [Suspect]
     Active Substance: CYCLOSPORINE
     Dosage: 150 MG, UNK
     Route: 048
     Dates: start: 20110121, end: 20120629
  35. NEORAL [Suspect]
     Active Substance: CYCLOSPORINE
     Dosage: 120 MG, UNK
     Route: 048
     Dates: start: 20121103
  36. NORVASC [Concomitant]
     Active Substance: AMLODIPINE BESYLATE
     Indication: HYPERTENSION
     Dosage: 5 MG, UNK
     Route: 048
     Dates: start: 20021119
  37. CELLCEPT [Suspect]
     Active Substance: MYCOPHENOLATE MOFETIL\MYCOPHENOLATE MOFETIL HYDROCHLORIDE
     Dosage: 1.5 G, UNK
     Route: 048
     Dates: start: 20060520
  38. ZYLORIC [Concomitant]
     Active Substance: ALLOPURINOL
     Indication: HYPERURICAEMIA
     Dosage: 200 MG, UNK
     Route: 048
     Dates: start: 20110316
  39. NEORAL [Suspect]
     Active Substance: CYCLOSPORINE
     Dosage: 450 MG, QD
     Route: 048
     Dates: start: 20021119, end: 20021121
  40. NEORAL [Suspect]
     Active Substance: CYCLOSPORINE
     Dosage: 175 MG, QD
     Route: 048
     Dates: start: 20040208, end: 20060510
  41. PREDONINE [Suspect]
     Active Substance: PREDNISOLONE\PREDNISOLONE ACETATE\PREDNISOLONE SODIUM SUCCINATE
     Indication: HEART TRANSPLANT
     Dosage: 20 MG, QD (5 TO 20 MG)
     Route: 048
     Dates: start: 20021114
  42. CELLCEPT [Suspect]
     Active Substance: MYCOPHENOLATE MOFETIL\MYCOPHENOLATE MOFETIL HYDROCHLORIDE
     Dosage: 0.5 G, UNK
     Route: 048
     Dates: start: 20080523, end: 20091119
  43. PROGRAF [Suspect]
     Active Substance: TACROLIMUS\TACROLIMUS ANHYDROUS
     Indication: HEART TRANSPLANT
     Dosage: UNK
     Route: 048
  44. CERTICAN [Suspect]
     Active Substance: EVEROLIMUS
     Dosage: 1 MG, UNK
     Route: 048
     Dates: start: 20090307, end: 20130315
  45. NEORAL [Suspect]
     Active Substance: CYCLOSPORINE
     Dosage: 425 MG, QD
     Route: 048
     Dates: start: 20021122, end: 20021122
  46. NEORAL [Suspect]
     Active Substance: CYCLOSPORINE
     Dosage: 375 MG, QD
     Route: 048
     Dates: start: 20021123, end: 20021123
  47. NEORAL [Suspect]
     Active Substance: CYCLOSPORINE
     Dosage: 325 MG, QD
     Route: 048
     Dates: start: 20021124, end: 20021124
  48. NEORAL [Suspect]
     Active Substance: CYCLOSPORINE
     Dosage: 225 MG, QD
     Route: 048
     Dates: start: 20021205, end: 20021205
  49. NEORAL [Suspect]
     Active Substance: CYCLOSPORINE
     Dosage: 200 MG, QD
     Route: 048
     Dates: start: 20031024, end: 20040207
  50. NEORAL [Suspect]
     Active Substance: CYCLOSPORINE
     Dosage: 125 MG, QD
     Route: 048
     Dates: start: 20080314, end: 20091028
  51. CELLCEPT [Suspect]
     Active Substance: MYCOPHENOLATE MOFETIL\MYCOPHENOLATE MOFETIL HYDROCHLORIDE
     Indication: HEART TRANSPLANT
     Dosage: 2 G, (1000 TO 2000MG)
     Route: 048
     Dates: start: 20021114, end: 20060519

REACTIONS (13)
  - Hypercholesterolaemia [Not Recovered/Not Resolved]
  - Immunosuppressant drug level increased [Unknown]
  - Cholecystitis [Recovered/Resolved]
  - Blood triglycerides increased [Recovering/Resolving]
  - Cholelithiasis [Unknown]
  - Pneumonia pneumococcal [Recovered/Resolved]
  - Sialoadenitis [Recovered/Resolved]
  - Coronary artery disease [Unknown]
  - Hyperuricaemia [Recovered/Resolved]
  - Stomatitis [Not Recovered/Not Resolved]
  - Transplantation complication [Unknown]
  - Blood creatine phosphokinase increased [Unknown]
  - Condition aggravated [Not Recovered/Not Resolved]

NARRATIVE: CASE EVENT DATE: 20070408
